FAERS Safety Report 17856653 (Version 4)
Quarter: 2020Q4

REPORT INFORMATION
  Report Type: Report from Study
  Country: CA (occurrence: CA)
  Receive Date: 20200603
  Receipt Date: 20201009
  Transmission Date: 20210113
  Serious: Yes (Other)
  Sender: FDA-Public Use
  Company Number: CA-JNJFOC-20200525589

PATIENT
  Age: 37 Year
  Sex: Female
  Weight: 52 kg

DRUGS (3)
  1. STELARA [Suspect]
     Active Substance: USTEKINUMAB
     Indication: COLITIS ULCERATIVE
     Route: 058
  2. STELARA [Suspect]
     Active Substance: USTEKINUMAB
     Dosage: ON 11-JUN-2020 THE PATIENT RECEIVED HER 5TH 260 MG STELARA INFUSION
     Route: 042
  3. STELARA [Suspect]
     Active Substance: USTEKINUMAB
     Route: 058
     Dates: start: 20191121, end: 20201002

REACTIONS (7)
  - Colitis ulcerative [Recovering/Resolving]
  - Off label use [Unknown]
  - Hepatic enzyme increased [Unknown]
  - Cytomegalovirus infection [Unknown]
  - Insomnia [Unknown]
  - Tremor [Unknown]
  - Product use issue [Unknown]

NARRATIVE: CASE EVENT DATE: 20191121
